FAERS Safety Report 6749540-0 (Version None)
Quarter: 2010Q2

REPORT INFORMATION
  Report Type: 
  Country: None (occurrence: None)
  Receive Date: 20100601
  Receipt Date: 20100520
  Transmission Date: 20101027
  Serious: Yes (Hospitalization)
  Sender: FDA-Public Use
  Company Number: NL-ASTRAZENECA-2010SE23380

PATIENT
  Age: 46 Year
  Sex: Female
  Weight: 76 kg

DRUGS (1)
  1. SEROQUEL [Suspect]
     Indication: PSYCHOTIC DISORDER
     Route: 048
     Dates: start: 19990101

REACTIONS (3)
  - GAMMA-GLUTAMYLTRANSFERASE INCREASED [None]
  - HYPERCHOLESTEROLAEMIA [None]
  - TRIGEMINAL NEURALGIA [None]
